FAERS Safety Report 11795967 (Version 2)
Quarter: 2016Q1

REPORT INFORMATION
  Report Type: Spontaneous
  Country: FR (occurrence: FR)
  Receive Date: 20151203
  Receipt Date: 20160121
  Transmission Date: 20160525
  Serious: Yes (Hospitalization)
  Sender: FDA-Public Use
  Company Number: FR-ROCHE-1671812

PATIENT
  Age: 62 Year
  Sex: Male

DRUGS (3)
  1. INNOHEP [Suspect]
     Active Substance: TINZAPARIN SODIUM
     Indication: GLIOBLASTOMA
     Route: 065
  2. BELUSTINE [Concomitant]
     Active Substance: LOMUSTINE
  3. AVASTIN [Suspect]
     Active Substance: BEVACIZUMAB
     Indication: GLIOBLASTOMA
     Route: 042
     Dates: start: 20150828, end: 20150925

REACTIONS (3)
  - Muscle haemorrhage [Recovering/Resolving]
  - Anaemia [Recovered/Resolved]
  - Haematoma [Recovering/Resolving]

NARRATIVE: CASE EVENT DATE: 20151003
